FAERS Safety Report 11272667 (Version 1)
Quarter: 2015Q3

REPORT INFORMATION
  Report Type: Spontaneous
  Country: HU (occurrence: HU)
  Receive Date: 20150715
  Receipt Date: 20150715
  Transmission Date: 20151125
  Serious: Yes (Other)
  Sender: FDA-Public Use
  Company Number: HU-MYLANLABS-2015M1022892

PATIENT

DRUGS (2)
  1. PAROXETINE [Suspect]
     Active Substance: PAROXETINE\PAROXETINE HYDROCHLORIDE
     Indication: ANXIETY
     Dosage: UNK
  2. CLONAZEPAM. [Suspect]
     Active Substance: CLONAZEPAM
     Indication: ANXIETY
     Dosage: UNK

REACTIONS (8)
  - Hemiparesis [Unknown]
  - Asthenia [Unknown]
  - Dizziness [Unknown]
  - Gait disturbance [Unknown]
  - Hypereosinophilic syndrome [Unknown]
  - Pain in extremity [Unknown]
  - Anaemia [Unknown]
  - Hypoaesthesia [Unknown]
